FAERS Safety Report 24603107 (Version 4)
Quarter: 2025Q3

REPORT INFORMATION
  Report Type: Spontaneous
  Country: US (occurrence: US)
  Receive Date: 20241111
  Receipt Date: 20250816
  Transmission Date: 20251021
  Serious: No
  Sender: ALEXION PHARMACEUTICALS
  Company Number: US-AstraZeneca-CH-00741442AP

PATIENT
  Sex: Female

DRUGS (1)
  1. BYDUREON BCISE [Suspect]
     Active Substance: EXENATIDE

REACTIONS (7)
  - Needle issue [Unknown]
  - Unknown schedule of product administration [Unknown]
  - Memory impairment [Unknown]
  - Capripox viral infection [Unknown]
  - Haemorrhage [Unknown]
  - Bloody discharge [Unknown]
  - Product administration error [Unknown]
